FAERS Safety Report 16511157 (Version 3)
Quarter: 2019Q3

REPORT INFORMATION
  Report Type: Spontaneous
  Country: RU (occurrence: RU)
  Receive Date: 20190702
  Receipt Date: 20190828
  Transmission Date: 20191004
  Serious: Yes (Other)
  Sender: FDA-Public Use
  Company Number: PHHY2019RU149577

PATIENT
  Sex: Male

DRUGS (1)
  1. COSENTYX [Suspect]
     Active Substance: SECUKINUMAB
     Indication: PSORIASIS
     Dosage: 300 MG, UNK
     Route: 058
     Dates: start: 20190527, end: 201906

REACTIONS (5)
  - Asphyxia [Unknown]
  - Dyspnoea [Unknown]
  - Dizziness [Unknown]
  - Somatic symptom disorder [Unknown]
  - Malaise [Unknown]

NARRATIVE: CASE EVENT DATE: 201905
